FAERS Safety Report 21382533 (Version 1)
Quarter: 2022Q3

REPORT INFORMATION
  Report Type: Other
  Country: CN (occurrence: None)
  Receive Date: 20220927
  Receipt Date: 20220927
  Transmission Date: 20221026
  Serious: Yes (Other)
  Sender: FDA-Public Use
  Company Number: CN-ROCHE-3187835

PATIENT

DRUGS (3)
  1. BEVACIZUMAB [Suspect]
     Active Substance: BEVACIZUMAB
     Indication: Non-small cell lung cancer
     Dosage: ON DAY 1 AND 28 DAYS WAS ONE CYCLE AND MEDICATION WAS CONTINUED FOR FOUR CYCLE
     Route: 041
  2. PEMETREXED DISODIUM [Suspect]
     Active Substance: PEMETREXED DISODIUM
     Indication: Non-small cell lung cancer
     Dosage: ON DAY 1 AND 28 DAYS WAS ONE CYCLE AND MEDICATION WAS CONTINUED FOR FOUR CYCLE
     Route: 041
  3. CISPLATIN [Suspect]
     Active Substance: CISPLATIN
     Indication: Non-small cell lung cancer
     Dosage: ON DAYS 2-3 AND 28 DAYS WAS ONE CYCLE AND MEDICATION WAS CONTINUED FOR FOUR CYCLE
     Route: 041

REACTIONS (1)
  - Myelosuppression [Unknown]
